FAERS Safety Report 7367315-9 (Version None)
Quarter: 2011Q1

REPORT INFORMATION
  Report Type: 
  Country: None (occurrence: None)
  Receive Date: 20110322
  Receipt Date: 20081001
  Transmission Date: 20110831
  Serious: Yes (Death, Hospitalization, Other)
  Sender: FDA-Public Use
  Company Number: US-BAYER-200836237NA

PATIENT
  Sex: Male
  Weight: 83.9 kg

DRUGS (37)
  1. DIURETICS [Concomitant]
     Dosage: UNK
     Route: 041
     Dates: start: 20040213
  2. DIAMOX [Concomitant]
     Dosage: UNK
     Route: 042
     Dates: start: 20040214
  3. PROPOFOL [Concomitant]
     Dosage: UNK
     Dates: start: 20040216
  4. GLYBURIDE [Concomitant]
     Dosage: 10 MG, UNK
     Route: 048
     Dates: start: 20020815
  5. MANNITOL [Concomitant]
     Dosage: 50 G, UNK
     Route: 042
     Dates: start: 20040212
  6. CONTRAST MEDIA [Concomitant]
     Indication: CATHETERISATION CARDIAC
     Dosage: 80 ML, UNK
     Dates: start: 20040211
  7. DIURETICS [Concomitant]
     Indication: FLUID OVERLOAD
     Dosage: UNK
     Dates: end: 20040201
  8. DOPAMINE [Concomitant]
     Dosage: UNK
     Route: 041
     Dates: start: 20040213
  9. NORMAL SALINE [Concomitant]
     Dosage: UNK
     Dates: start: 20040217, end: 20040201
  10. VANCOMYCIN [Concomitant]
     Indication: SEPSIS
     Dosage: UNK
     Dates: start: 20040217
  11. ASPIRIN [Concomitant]
     Dosage: 81 MG, UNK
     Route: 048
     Dates: start: 20020815
  12. ZINACEF [Concomitant]
     Dosage: 15 G, UNK, IVPB
     Dates: start: 20040212
  13. AMIODARONE HCL [Concomitant]
     Dosage: UNK
     Dates: start: 20040215
  14. LACTATED RINGER'S [Concomitant]
     Dosage: 250 ML/HR
     Dates: start: 20040217
  15. TRASYLOL [Suspect]
     Indication: CORONARY ARTERY BYPASS
     Dosage: UNK
     Route: 042
     Dates: start: 20040212
  16. SODIUM BICARBONATE [Concomitant]
     Dosage: UNK
     Dates: start: 20040213
  17. NORMAL SALINE [Concomitant]
     Dosage: UNK
     Dates: start: 20040217
  18. NORVASC [Concomitant]
     Dosage: 10 MG, UNK
     Route: 048
     Dates: start: 20020815
  19. HEPARIN [Concomitant]
     Dosage: 10.000 UNITS/500 ML
     Route: 042
     Dates: start: 20040212
  20. NATRECOR [Concomitant]
     Dosage: UNK
     Dates: end: 20040213
  21. BUMEX [Concomitant]
     Dosage: UNK
     Route: 042
     Dates: start: 20040214
  22. DIALYSATE [Concomitant]
     Dosage: 1500 ML/HR
     Dates: start: 20040217
  23. EPINEPHRINE [Concomitant]
     Dosage: UNK
     Dates: start: 20040217
  24. ZOSYN [Concomitant]
     Indication: SEPSIS
     Dosage: UNK
     Dates: start: 20040217
  25. NADOLOL [Concomitant]
     Dosage: 40 MG, UNK
     Route: 048
     Dates: start: 20020815
  26. LASIX [Concomitant]
     Dosage: 40 MG, UNK
     Route: 048
     Dates: start: 20020815
  27. FENTANYL [Concomitant]
     Dosage: 8
     Route: 042
     Dates: start: 20040212
  28. UNCODEABLE ^UNCLASSIFIABLE^ [Concomitant]
     Dosage: 2
     Dates: start: 20040212
  29. TRICOR [Concomitant]
     Dosage: 160 MG, UNK
     Route: 048
     Dates: start: 20020815
  30. AVANDIA [Concomitant]
     Dosage: 8 MG, UNK
     Route: 048
     Dates: start: 20020815
  31. LISINOPRIL [Concomitant]
     Dosage: 20 MG, UNK
     Route: 048
     Dates: start: 20030617
  32. ANGIOTENSIN II ANTAGONISTS [Concomitant]
     Dosage: UNK
     Dates: end: 20040201
  33. DIURETICS [Concomitant]
     Dosage: UNK
     Dates: start: 20040212
  34. NATRECOR [Concomitant]
     Dosage: UNK
     Route: 041
     Dates: start: 20040216
  35. NEPRO [Concomitant]
     Dosage: 43 ML/HR
     Dates: start: 20040215
  36. XALATAN [Concomitant]
     Dosage: 0.005% ONE DROP EACH EYE
     Route: 047
     Dates: start: 20030617
  37. UNCODEABLE ^UNCLASSIFIABLE^ [Concomitant]
     Dosage: UNK
     Dates: start: 20040213

REACTIONS (12)
  - ANHEDONIA [None]
  - DEATH [None]
  - EMOTIONAL DISTRESS [None]
  - RENAL IMPAIRMENT [None]
  - RENAL INJURY [None]
  - UNEVALUABLE EVENT [None]
  - FEAR [None]
  - RENAL FAILURE [None]
  - STRESS [None]
  - ANXIETY [None]
  - INJURY [None]
  - PAIN [None]
